FAERS Safety Report 6138198-X (Version None)
Quarter: 2009Q1

REPORT INFORMATION
  Report Type: 
  Country: None (occurrence: None)
  Receive Date: 20090331
  Receipt Date: 20090325
  Transmission Date: 20090719
  Serious: Yes (Congenital Anomaly)
  Sender: FDA-Public Use
  Company Number: A0715872A

PATIENT
  Sex: Female
  Weight: 3.4 kg

DRUGS (4)
  1. PAXIL [Suspect]
     Indication: POSTPARTUM DEPRESSION
     Dosage: 40MG PER DAY
     Dates: start: 20020101
  2. PAROXETINE HYDROCHLORIDE [Suspect]
     Indication: POSTPARTUM DEPRESSION
     Dosage: 40MG PER DAY
  3. PRILOSEC [Concomitant]
  4. INSULIN [Concomitant]

REACTIONS (15)
  - ANKYLOGLOSSIA CONGENITAL [None]
  - APGAR SCORE LOW [None]
  - ATRIAL SEPTAL DEFECT [None]
  - CARDIAC MURMUR [None]
  - CYANOSIS NEONATAL [None]
  - DEVELOPMENTAL COORDINATION DISORDER [None]
  - DRUG EXPOSURE DURING PREGNANCY [None]
  - EXTRASYSTOLES [None]
  - FOETAL ARRHYTHMIA [None]
  - MATERNAL DRUGS AFFECTING FOETUS [None]
  - MULTIPLE CONGENITAL ABNORMALITIES [None]
  - PSYCHOMOTOR SKILLS IMPAIRED [None]
  - PULMONARY VALVE STENOSIS [None]
  - RESPIRATORY DISORDER NEONATAL [None]
  - SPEECH DISORDER DEVELOPMENTAL [None]
